FAERS Safety Report 7124300-X (Version None)
Quarter: 2010Q4

REPORT INFORMATION
  Report Type: 
  Country: None (occurrence: None)
  Receive Date: 20101126
  Receipt Date: 20101116
  Transmission Date: 20110411
  Serious: Yes (Other)
  Sender: FDA-Public Use
  Company Number: PHHY2010JP77465

PATIENT
  Age: 75 Year
  Sex: Female

DRUGS (2)
  1. FLUVASTATIN [Suspect]
     Dosage: 30 MG DAILY
     Route: 048
  2. AVAPRO [Concomitant]
     Dosage: 10 MG
     Route: 048

REACTIONS (4)
  - HYPOAESTHESIA [None]
  - MUSCLE SPASMS [None]
  - MUSCULAR WEAKNESS [None]
  - MUSCULOSKELETAL STIFFNESS [None]
